FAERS Safety Report 12489080 (Version 1)
Quarter: 2016Q2

REPORT INFORMATION
  Report Type: Spontaneous
  Country: US (occurrence: US)
  Receive Date: 20160622
  Receipt Date: 20160622
  Transmission Date: 20160815
  Serious: Yes (Hospitalization, Other)
  Sender: FDA-Public Use
  Company Number: US-BRISTOL-MYERS SQUIBB COMPANY-BMS-2016-050176

PATIENT
  Sex: Male
  Weight: 71.6 kg

DRUGS (6)
  1. OPDIVO [Suspect]
     Active Substance: NIVOLUMAB
     Dosage: UNK
     Route: 065
     Dates: start: 20160201
  2. OPDIVO [Suspect]
     Active Substance: NIVOLUMAB
     Dosage: UNK
     Route: 065
     Dates: start: 20160215
  3. OPDIVO [Suspect]
     Active Substance: NIVOLUMAB
     Indication: RENAL CANCER METASTATIC
     Dosage: UNK
     Route: 065
     Dates: start: 20160104
  4. OPDIVO [Suspect]
     Active Substance: NIVOLUMAB
     Dosage: UNK
     Route: 065
     Dates: start: 20160229
  5. OPDIVO [Suspect]
     Active Substance: NIVOLUMAB
     Dosage: UNK
     Route: 065
     Dates: start: 20160314
  6. OPDIVO [Suspect]
     Active Substance: NIVOLUMAB
     Dosage: UNK
     Route: 065
     Dates: start: 20160118

REACTIONS (4)
  - Weight decreased [Unknown]
  - Colitis [Recovered/Resolved]
  - Enteritis [Recovered/Resolved]
  - Malignant neoplasm progression [Recovering/Resolving]
